FAERS Safety Report 9089183 (Version 1)
Quarter: 2013Q1

REPORT INFORMATION
  Report Type: Spontaneous
  Country: IT (occurrence: IT)
  Receive Date: 20130201
  Receipt Date: 20130201
  Transmission Date: 20140127
  Serious: Yes (Hospitalization)
  Sender: FDA-Public Use
  Company Number: IT-JNJFOC-20130103073

PATIENT
  Age: 35 Year
  Sex: Female

DRUGS (3)
  1. HALDOL DECANOAS [Suspect]
     Indication: PSYCHOTIC DISORDER
     Route: 030
     Dates: start: 20121112, end: 20121112
  2. HALDOL DECANOAS [Suspect]
     Indication: PSYCHOTIC DISORDER
     Route: 030
     Dates: start: 201206, end: 201211
  3. DEPAKIN CHRONO [Suspect]
     Indication: PSYCHOTIC DISORDER
     Route: 048
     Dates: start: 20120601, end: 20121116

REACTIONS (7)
  - Malaise [Recovered/Resolved]
  - Suicidal ideation [Unknown]
  - Agitation [Recovered/Resolved]
  - Rhabdomyolysis [Recovered/Resolved]
  - Hypokalaemia [Recovered/Resolved]
  - Insomnia [Recovered/Resolved]
  - Depressed mood [Recovered/Resolved]
